FAERS Safety Report 9164818 (Version 1)
Quarter: 2013Q1

REPORT INFORMATION
  Report Type: Spontaneous
  Country: US (occurrence: None)
  Receive Date: 20130227
  Receipt Date: 20130227
  Transmission Date: 20140127
  Serious: Yes (Hospitalization)
  Sender: FDA-Public Use
  Company Number: 2013-0272

PATIENT
  Age: 62 Year
  Sex: Male

DRUGS (1)
  1. CARFILZOMIB (CARFILZOMIB) (20 MILLIGRAM(S)/SQ.METER, INJECTION FOR INFUSION) (CARFILZOMIB) [Suspect]
     Indication: PLASMA CELL MYELOMA
     Route: 042
     Dates: start: 20120719, end: 20120720

REACTIONS (7)
  - Pancytopenia [None]
  - Renal failure acute [None]
  - Disease progression [None]
  - Heart rate increased [None]
  - Haematoma [None]
  - Cough [None]
  - Plasma cell myeloma [None]
